FAERS Safety Report 9713899 (Version 1)
Quarter: 2013Q4

REPORT INFORMATION
  Report Type: Spontaneous
  Country: US (occurrence: None)
  Receive Date: 20131126
  Receipt Date: 20131126
  Transmission Date: 20140711
  Serious: Yes (Other)
  Sender: FDA-Public Use
  Company Number: None

PATIENT
  Age: 31 Year
  Sex: Male
  Weight: 72.58 kg

DRUGS (1)
  1. ADDERALL XR [Suspect]
     Indication: ATTENTION DEFICIT/HYPERACTIVITY DISORDER
     Dates: start: 20131120, end: 20131125

REACTIONS (11)
  - Dizziness [None]
  - Product quality issue [None]
  - Product substitution issue [None]
  - Drug ineffective [None]
  - Sluggishness [None]
  - Fatigue [None]
  - Nausea [None]
  - Decreased appetite [None]
  - Dysgeusia [None]
  - Frustration [None]
  - Incorrect dose administered [None]
